FAERS Safety Report 7967170-X (Version None)
Quarter: 2011Q4

REPORT INFORMATION
  Report Type: 
  Country: None (occurrence: None)
  Receive Date: 20111206
  Receipt Date: 20111124
  Transmission Date: 20120403
  Serious: Yes (Hospitalization)
  Sender: FDA-Public Use
  Company Number: TCI2011A05232

PATIENT
  Age: 74 Year
  Sex: Male

DRUGS (4)
  1. KINEDAK (EPALRESTAT) [Concomitant]
  2. METHYCOBAL (MECOBALAMIN) [Concomitant]
  3. ACTOS [Suspect]
     Dosage: 15 MG (15 MG, 1 IN 1 D) PER ORAL
     Route: 048
     Dates: start: 20080310, end: 20110710
  4. BAYASPIRIN (AETYLSALICYLIC ACID) [Concomitant]

REACTIONS (2)
  - DIABETES MELLITUS INADEQUATE CONTROL [None]
  - BLADDER TRANSITIONAL CELL CARCINOMA [None]
